FAERS Safety Report 7009174-X (Version None)
Quarter: 2010Q3

REPORT INFORMATION
  Report Type: 
  Country: None (occurrence: None)
  Receive Date: 20100923
  Receipt Date: 20100914
  Transmission Date: 20110219
  Serious: Yes (Hospitalization)
  Sender: FDA-Public Use
  Company Number: US-JNJFOC-20091203058

PATIENT
  Sex: Male
  Weight: 85.73 kg

DRUGS (18)
  1. DECITABINE [Suspect]
     Route: 058
  2. DECITABINE [Suspect]
     Indication: MYELODYSPLASTIC SYNDROME
     Route: 058
  3. ASPIRIN [Suspect]
     Indication: PRODUCT USED FOR UNKNOWN INDICATION
     Route: 048
  4. PLAVIX [Suspect]
     Indication: PRODUCT USED FOR UNKNOWN INDICATION
     Route: 048
  5. FOLIC ACID [Concomitant]
     Route: 048
  6. METOPROLOL [Concomitant]
     Route: 048
  7. RAMIPRIL [Concomitant]
     Route: 048
  8. FUROSEMIDE [Concomitant]
     Route: 042
  9. FUROSEMIDE [Concomitant]
     Route: 042
  10. TRAMADOL [Concomitant]
     Route: 048
  11. AMBIEN [Concomitant]
     Route: 048
  12. CARAFATE [Concomitant]
     Route: 048
  13. SPIRIVA [Concomitant]
     Route: 055
  14. ADVAIR DISKUS 100/50 [Concomitant]
     Route: 055
  15. ASCORBIC ACID [Concomitant]
     Route: 048
  16. MULTI-VITAMINS [Concomitant]
     Route: 048
  17. MEGACE [Concomitant]
     Route: 065
  18. ULTRAM [Concomitant]
     Indication: PAIN
     Route: 065

REACTIONS (3)
  - ANGINA UNSTABLE [None]
  - CHRONIC OBSTRUCTIVE PULMONARY DISEASE [None]
  - GASTROINTESTINAL HAEMORRHAGE [None]
